FAERS Safety Report 25260361 (Version 3)
Quarter: 2025Q2

REPORT INFORMATION
  Report Type: Spontaneous
  Country: IR (occurrence: IR)
  Receive Date: 20250501
  Receipt Date: 20250521
  Transmission Date: 20250717
  Serious: Yes (Life-Threatening, Hospitalization, Other)
  Sender: PFIZER
  Company Number: IR-MLMSERVICE-20250421-PI486866-00329-1

PATIENT
  Age: 68 Year
  Sex: Male

DRUGS (9)
  1. VANCOMYCIN HYDROCHLORIDE [Suspect]
     Active Substance: VANCOMYCIN HYDROCHLORIDE
     Indication: Sepsis
     Route: 042
  2. VANCOMYCIN HYDROCHLORIDE [Suspect]
     Active Substance: VANCOMYCIN HYDROCHLORIDE
     Dosage: 1000?MG EVERY 12 HOURS
     Route: 042
  3. ALTEPLASE [Suspect]
     Active Substance: ALTEPLASE
     Indication: Cerebrovascular accident
  4. ALTEPLASE [Suspect]
     Active Substance: ALTEPLASE
     Route: 042
  5. ATORVASTATIN [Concomitant]
     Active Substance: ATORVASTATIN
  6. CARVEDILOL [Concomitant]
     Active Substance: CARVEDILOL
  7. ASPIRIN [Concomitant]
     Active Substance: ASPIRIN
  8. ALLOPURINOL [Concomitant]
     Active Substance: ALLOPURINOL
  9. MEROPENEM [Concomitant]
     Active Substance: MEROPENEM
     Indication: Sepsis
     Dosage: 1000?MG EVERY 12?H
     Route: 042

REACTIONS (1)
  - Bullous haemorrhagic dermatosis [Not Recovered/Not Resolved]
